FAERS Safety Report 4620128-0 (Version None)
Quarter: 2005Q1

REPORT INFORMATION
  Report Type: 
  Country: None (occurrence: None)
  Receive Date: 20050324
  Receipt Date: 20050315
  Transmission Date: 20050727
  Serious: Yes (Life-Threatening, Hospitalization)
  Sender: FDA-Public Use
  Company Number: DE-2005-003623

PATIENT
  Age: 71 Year
  Sex: Male
  Weight: 86 kg

DRUGS (9)
  1. CAMPATH [Suspect]
     Dosage: SEE IMAGE
     Route: 042
     Dates: start: 20041201, end: 20041202
  2. CAMPATH [Suspect]
     Dosage: SEE IMAGE
     Route: 042
     Dates: start: 20041203, end: 20041215
  3. CAMPATH [Suspect]
     Dosage: SEE IMAGE
     Route: 042
     Dates: start: 20041221, end: 20041222
  4. FLUDARABINE PHOSPHATE [Concomitant]
  5. CLEMASTINE (CLEMASTINE) [Concomitant]
  6. PARACETAMOL [Concomitant]
  7. COTRIM E [Concomitant]
  8. ACYCLOVIR [Concomitant]
  9. PREDNISONE [Concomitant]

REACTIONS (4)
  - ANAEMIA [None]
  - ANAPHYLACTIC SHOCK [None]
  - BRONCHOSPASM [None]
  - THROMBOCYTOPENIA [None]
